FAERS Safety Report 8551157-2 (Version None)
Quarter: 2012Q3

REPORT INFORMATION
  Report Type: 
  Country: None (occurrence: None)
  Receive Date: 20120730
  Receipt Date: 20120720
  Transmission Date: 20120928
  Serious: Yes (Hospitalization)
  Sender: FDA-Public Use
  Company Number: JP-VERTEX PHARMACEUTICALS INC.-AE-2012-010893

PATIENT
  Age: 66 Year
  Sex: Male

DRUGS (4)
  1. ALLOPURINOL [Concomitant]
     Route: 048
  2. PEG-INTRON [Concomitant]
     Route: 058
     Dates: start: 20120604, end: 20120708
  3. TELAVIC (TELAPREVIR) [Suspect]
     Route: 048
     Dates: start: 20120604, end: 20120708
  4. REBETOL [Concomitant]
     Route: 048
     Dates: start: 20120604, end: 20120708

REACTIONS (2)
  - DRUG ERUPTION [None]
  - AMYLASE INCREASED [None]
